FAERS Safety Report 5454402-5 (Version None)
Quarter: 2007Q3

REPORT INFORMATION
  Report Type: 
  Country: None (occurrence: None)
  Receive Date: 20070917
  Receipt Date: 20070906
  Transmission Date: 20080115
  Serious: Yes (Other)
  Sender: FDA-Public Use
  Company Number: HQWYE913505JUL07

PATIENT
  Age: 72 Year
  Sex: Female
  Weight: 55 kg

DRUGS (2)
  1. TYGACIL [Suspect]
     Indication: SKIN ULCER
     Dosage: 100 MG LOAD THEN 50 MG TWICE DAILY
     Route: 042
     Dates: start: 20070528, end: 20070630
  2. TYGACIL [Suspect]
     Indication: CELLULITIS

REACTIONS (1)
  - KLEBSIELLA BACTERAEMIA [None]
